FAERS Safety Report 5664972-X (Version None)
Quarter: 2008Q1

REPORT INFORMATION
  Report Type: 
  Country: None (occurrence: None)
  Receive Date: 20080314
  Receipt Date: 20080304
  Transmission Date: 20080703
  Serious: Yes (Hospitalization, Other)
  Sender: FDA-Public Use
  Company Number: JP-PFIZER INC-2008015821

PATIENT
  Age: 57 Year
  Sex: Female

DRUGS (5)
  1. GABAPEN [Suspect]
     Indication: PARTIAL SEIZURES
     Dosage: DAILY DOSE:1200MG
     Route: 048
     Dates: start: 20080118, end: 20080218
  2. SPLENDIL [Suspect]
     Indication: HYPERTENSION
     Dosage: DAILY DOSE:10MG
     Route: 048
  3. ALTAT [Suspect]
     Indication: GASTRIC ULCER
     Dosage: DAILY DOSE:75MG
     Route: 048
  4. DEPAKENE [Suspect]
     Indication: EPILEPSY
     Dosage: DAILY DOSE:800MG
     Route: 048
     Dates: end: 20080218
  5. LONGES [Suspect]
     Indication: HYPERTENSION
     Dosage: DAILY DOSE:20MG
     Route: 048

REACTIONS (2)
  - ANURIA [None]
  - BLOOD CREATINE PHOSPHOKINASE INCREASED [None]
